FAERS Safety Report 6962821-0 (Version None)
Quarter: 2010Q3

REPORT INFORMATION
  Report Type: 
  Country: None (occurrence: None)
  Receive Date: 20100823
  Receipt Date: 20100607
  Transmission Date: 20110219
  Serious: No
  Sender: FDA-Public Use
  Company Number: 013375

PATIENT
  Age: 56 Year
  Sex: Female

DRUGS (13)
  1. CIMZIA [Suspect]
     Indication: CROHN'S DISEASE
     Dosage: (200 MG 1X/2 WEEKS SUBCUTANEOUS)
     Route: 058
     Dates: start: 20090701
  2. SYNTHROID [Concomitant]
  3. NEXIUM [Concomitant]
  4. MICARDIS [Concomitant]
  5. DICLOFENAC SODIUM [Concomitant]
  6. METHADONE HCL [Concomitant]
  7. SKELAXIN [Concomitant]
  8. MIRALAX [Concomitant]
  9. HYDROCODONE [Concomitant]
  10. LIDODERM [Concomitant]
  11. VITAMIN B12 [Concomitant]
  12. POLY-IRON /01214501/ [Concomitant]
  13. DICYCLOMINE [Concomitant]

REACTIONS (1)
  - HAEMOGLOBIN DECREASED [None]
